FAERS Safety Report 8869620 (Version 1)
Quarter: 2012Q4

REPORT INFORMATION
  Report Type: 
  Country: US (occurrence: US)
  Receive Date: 20121026
  Receipt Date: 20121026
  Transmission Date: 20130627
  Serious: No
  Sender: FDA-Public Use
  Company Number: US-AMGEN-USASP2012045752

PATIENT
  Sex: Female
  Weight: 72.11 kg

DRUGS (9)
  1. ENBREL [Suspect]
     Indication: PRODUCT USED FOR UNKNOWN INDICATION
     Dosage: 50 mg/ml, qwk
     Route: 058
  2. PLAQUENIL                          /00072602/ [Concomitant]
     Dosage: 200 mg, UNK
  3. HYDROCHLOROTH [Concomitant]
     Dosage: 12.5 mg, UNK
  4. LEVOTHYROXIN [Concomitant]
     Dosage: 50 mug, UNK
  5. FOLIC ACID [Concomitant]
     Dosage: UNK
  6. TYLENOL PM [Concomitant]
     Dosage: UNK
  7. MULTI VITAMIN WITH FLUORIDE [Concomitant]
     Dosage: UNK
  8. BLACK COHOSH                       /01456801/ [Concomitant]
     Dosage: 160 mg, UNK
  9. METHOTREXAT                        /00113801/ [Concomitant]
     Dosage: 1 g, UNK

REACTIONS (1)
  - Oropharyngeal pain [Recovering/Resolving]
